FAERS Safety Report 9825728 (Version 2)
Quarter: 2014Q3

REPORT INFORMATION
  Report Type: Spontaneous
  Country: US (occurrence: None)
  Receive Date: 20131028
  Receipt Date: 20140818
  Transmission Date: 20150326
  Serious: Yes (Other)
  Sender: FDA-Public Use
  Company Number: 2013US002309

PATIENT
  Age: 33 Year
  Sex: Male
  Weight: 81 kg

DRUGS (6)
  1. VITAMIN C (VITAMIN C) [Concomitant]
  2. HYDROCORTISONE (HYDROCORTISONE) [Concomitant]
     Active Substance: HYDROCORTISONE
  3. VICODIN [Concomitant]
     Active Substance: ACETAMINOPHEN\HYDROCODONE BITARTRATE
  4. COUMADIN [Concomitant]
     Active Substance: WARFARIN SODIUM
  5. LYRICA [Concomitant]
     Active Substance: PREGABALIN
  6. ICLUSIG [Suspect]
     Active Substance: PONATINIB
     Indication: CHRONIC MYELOID LEUKAEMIA
     Dosage: 45 MG, QD, ORAL
     Route: 048
     Dates: start: 20130117

REACTIONS (21)
  - Fungal skin infection [None]
  - Drug level below therapeutic [None]
  - Insomnia [None]
  - Headache [None]
  - Migraine [None]
  - Thrombocytopenia [None]
  - Fatigue [None]
  - Back pain [None]
  - Cough [None]
  - Myalgia [None]
  - Plasma cell myeloma [None]
  - Scleral haemorrhage [None]
  - Blood creatinine abnormal [None]
  - Arthralgia [None]
  - Haemoglobin abnormal [None]
  - Bone pain [None]
  - Abdominal pain upper [None]
  - Vision blurred [None]
  - Rash erythematous [None]
  - Weight decreased [None]
  - Eye pain [None]

NARRATIVE: CASE EVENT DATE: 201305
